FAERS Safety Report 20053682 (Version 1)
Quarter: 2021Q4

REPORT INFORMATION
  Report Type: Report from Study
  Country: US (occurrence: US)
  Receive Date: 20211110
  Receipt Date: 20211110
  Transmission Date: 20220303
  Serious: Yes (Hospitalization, Other)
  Sender: FDA-Public Use
  Company Number: US-OTSUKA-2021_038712

PATIENT
  Age: 0 Day
  Sex: Female
  Weight: 3.87 kg

DRUGS (1)
  1. ARIPIPRAZOLE [Suspect]
     Active Substance: ARIPIPRAZOLE
     Indication: Depression
     Dosage: 2 MG
     Route: 064

REACTIONS (1)
  - Nonreassuring foetal heart rate pattern [Recovered/Resolved]

NARRATIVE: CASE EVENT DATE: 20200526
